FAERS Safety Report 8819981 (Version 3)
Quarter: 2013Q1

REPORT INFORMATION
  Report Type: Spontaneous
  Country: US (occurrence: US)
  Receive Date: 20121001
  Receipt Date: 20130311
  Transmission Date: 20140127
  Serious: Yes (Hospitalization, Other)
  Sender: FDA-Public Use
  Company Number: US-ASTRAZENECA-2006UW09614

PATIENT
  Age: 63 Year
  Sex: Female
  Weight: 86.9 kg

DRUGS (50)
  1. ARIMIDEX [Suspect]
     Indication: BREAST CANCER
     Route: 048
     Dates: start: 200410, end: 200605
  2. ARIMIDEX [Suspect]
     Indication: BREAST CANCER RECURRENT
     Route: 048
     Dates: start: 200410, end: 200605
  3. NEXIUM [Suspect]
     Indication: GASTROOESOPHAGEAL REFLUX DISEASE
     Route: 048
  4. FASLODEX [Suspect]
     Indication: BREAST CANCER
     Route: 030
  5. LISINOPRIL [Suspect]
     Route: 048
  6. TOPROL XL [Suspect]
     Indication: BLOOD PRESSURE ABNORMAL
     Route: 048
  7. TOPROL XL [Suspect]
     Indication: BLOOD PRESSURE ABNORMAL
     Route: 048
  8. CRESTOR [Suspect]
     Route: 048
  9. LOTENSIN [Concomitant]
  10. NORVASC [Concomitant]
  11. LASIX [Concomitant]
  12. CATAPRES [Concomitant]
  13. ALLEGRA [Concomitant]
  14. ATARAX [Concomitant]
  15. FLONASE [Concomitant]
     Dosage: 50 MCG/ACT TWO EVERY MORNING
     Route: 045
  16. FOSAMAX [Concomitant]
  17. NEURONTIN [Concomitant]
     Dosage: 400
  18. PRILOSEC [Concomitant]
  19. VICODEN [Concomitant]
  20. MANY VITAMINS [Concomitant]
  21. WARFARIN SODIUM/COUMADIN [Concomitant]
     Indication: DEEP VEIN THROMBOSIS
     Dosage: 7.5 MG TAKE AS DIRECTED
     Route: 048
  22. WARFARIN SODIUM/COUMADIN [Concomitant]
     Indication: THROMBOSIS
     Dosage: 7.5 MG TAKE AS DIRECTED
     Route: 048
  23. WARFARIN SODIUM/COUMADIN [Concomitant]
     Indication: DEEP VEIN THROMBOSIS
     Route: 048
     Dates: start: 2008
  24. WARFARIN SODIUM/COUMADIN [Concomitant]
     Indication: THROMBOSIS
     Route: 048
     Dates: start: 2008
  25. TYLENOL [Concomitant]
     Dosage: RPT
  26. WELCHOL [Concomitant]
     Route: 048
  27. LYRICA [Concomitant]
     Route: 048
  28. LYRICA [Concomitant]
     Route: 048
  29. LYRICA [Concomitant]
     Route: 048
  30. TOBRAMYCIN SULFATE [Concomitant]
     Dosage: 0.3 PERCENT INSTILL ONE DROP INTO AFFECTED EYE FOUR TIMES DAILY
     Route: 047
  31. HYDROMORPHONE HCL [Concomitant]
     Indication: PAIN
     Dosage: TAKE ONE TO TWO TABLETS EVERY FOUR HOUR AS NEEDED
     Route: 048
  32. FUROSEMIDE [Concomitant]
     Route: 048
  33. LIDODERM [Concomitant]
     Dosage: FIVE PERCENT EXTERNAL PATCH APPLY ONE PATCH TO AFFECTED AREA 12 HRS ON/12 HRS OFF
  34. PLAVIX [Concomitant]
     Route: 048
  35. HYDROCODONE ACETOMINOPHEN [Concomitant]
     Indication: PAIN
     Dosage: 7.5/500 MG ONE TO TWO TABLETS BY MOUTH EVERY 6 HOURS
     Route: 048
  36. PRAVASTATIN SODIUM [Concomitant]
     Route: 048
  37. LIPITOR [Concomitant]
     Route: 048
  38. PATANOL [Concomitant]
     Dosage: 0.1 PERCENT INSTILL ONE DROP INTO BOTH EYES TWICE DAILY AT 6 TO 8 HOUR INTERVAL
     Route: 047
  39. XELODA [Concomitant]
     Dosage: TAKE TWO TABLETS IN THE MORNING AND ONE TABLET IN THE EVENING FOR TWO WEEKS THEN ONE WEEK OFF
     Route: 048
  40. MAGIC MOUTH WASH [Concomitant]
  41. LIDOCAINE [Concomitant]
     Route: 048
  42. NYSTATIN [Concomitant]
     Route: 048
  43. TRAMADOL HCL [Concomitant]
     Indication: PAIN
     Dosage: 50 MG FOUR TO SIX HOURS AS NEEDED
     Route: 048
  44. VALIUM [Concomitant]
     Route: 048
  45. OXYCODONE HCL [Concomitant]
     Indication: PAIN
     Dosage: 5 MG ONE TO TWO TABLETS EVERY FOUR TO SIX HOURS AS NEEDED
     Route: 048
  46. HCTZ [Concomitant]
  47. CAJAPES [Concomitant]
     Dosage: 0.2
  48. ZOCOR [Concomitant]
     Dosage: 20
  49. FLEXERIL [Concomitant]
     Dosage: 10
  50. MVI [Concomitant]

REACTIONS (44)
  - Gastric cancer [Unknown]
  - Loss of consciousness [Unknown]
  - Haematemesis [Unknown]
  - Thrombosis [Unknown]
  - Tooth disorder [Unknown]
  - Breast cancer recurrent [Unknown]
  - Metastases to bone [Unknown]
  - Osteonecrosis of jaw [Unknown]
  - Breast cancer metastatic [Not Recovered/Not Resolved]
  - Cardiac failure congestive [Unknown]
  - Cerebrovascular accident [Unknown]
  - Blood urine present [Unknown]
  - Intervertebral disc degeneration [Unknown]
  - Renal failure chronic [Unknown]
  - Herpes zoster [Unknown]
  - Hypertension [Unknown]
  - Back pain [Unknown]
  - Tendonitis [Unknown]
  - Embolism [Unknown]
  - Urge incontinence [Unknown]
  - Weight decreased [Unknown]
  - Radiation skin injury [Unknown]
  - Nephrogenic anaemia [Unknown]
  - Seroma [Unknown]
  - Oral pain [Unknown]
  - Local swelling [Unknown]
  - Osteoarthritis [Unknown]
  - Pain in extremity [Unknown]
  - Osteoporosis [Unknown]
  - Hypercholesterolaemia [Unknown]
  - Bone pain [Unknown]
  - Muscular weakness [Unknown]
  - Dyspnoea [Recovered/Resolved]
  - Ocular hyperaemia [Unknown]
  - Chest discomfort [Unknown]
  - Neck pain [Unknown]
  - Hypoaesthesia [Unknown]
  - Hot flush [Unknown]
  - Arthralgia [Unknown]
  - Constipation [Unknown]
  - Oedema peripheral [Unknown]
  - Headache [Unknown]
  - Fatigue [Unknown]
  - Abscess [Unknown]
